FAERS Safety Report 9600859 (Version 1)
Quarter: 2013Q4

REPORT INFORMATION
  Report Type: Spontaneous
  Country: US (occurrence: US)
  Receive Date: 20131004
  Receipt Date: 20131004
  Transmission Date: 20140711
  Serious: No
  Sender: FDA-Public Use
  Company Number: US-AMGEN-USASP2013037574

PATIENT
  Age: 34 Year
  Sex: Female
  Weight: 56.69 kg

DRUGS (5)
  1. ENBREL [Suspect]
     Indication: PRODUCT USED FOR UNKNOWN INDICATION
     Dosage: 50 MG, QWK
     Route: 065
  2. ALBUTEROL                          /00139501/ [Concomitant]
     Dosage: 0.63 MG, UNK
  3. SINGULAIR [Concomitant]
     Dosage: 4 MG, UNK
  4. SYMBICORT [Concomitant]
     Dosage: 80-4.5
  5. ALEVE [Concomitant]
     Dosage: 220 MG, UNK

REACTIONS (2)
  - Headache [Unknown]
  - Psoriasis [Unknown]
